FAERS Safety Report 18198480 (Version 3)
Quarter: 2020Q4

REPORT INFORMATION
  Report Type: Report from Study
  Country: US (occurrence: US)
  Receive Date: 20200826
  Receipt Date: 20201023
  Transmission Date: 20210113
  Serious: Yes (Other)
  Sender: FDA-Public Use
  Company Number: US-PFIZER INC-2020287632

PATIENT
  Age: 51 Year
  Sex: Female

DRUGS (3)
  1. IBRANCE [Suspect]
     Active Substance: PALBOCICLIB
     Dosage: 75 MG, CYCLIC (DAILY FOR 21 DAYS OF A 28-DAY CYCLE)
     Route: 048
     Dates: start: 20200805
  2. IBRANCE [Suspect]
     Active Substance: PALBOCICLIB
     Indication: BREAST CANCER
     Dosage: 125 MG, CYCLIC (DAILY FOR 21 DAYS OF A 28-DAY CYCLE)
     Route: 048
     Dates: start: 20200528, end: 2020
  3. IBRANCE [Suspect]
     Active Substance: PALBOCICLIB
     Dosage: 100 MG, CYCLIC (DAILY FOR 21 DAYS OF A 28-DAY CYCLE)
     Route: 048
     Dates: start: 20200628, end: 20200804

REACTIONS (4)
  - Leukopenia [Recovered/Resolved]
  - Myelosuppression [Not Recovered/Not Resolved]
  - Feeling hot [Unknown]
  - Pruritus [Unknown]

NARRATIVE: CASE EVENT DATE: 2020
